FAERS Safety Report 5500712-2 (Version None)
Quarter: 2007Q4

REPORT INFORMATION
  Report Type: 
  Country: None (occurrence: None)
  Receive Date: 20071025
  Receipt Date: 20071017
  Transmission Date: 20080405
  Serious: Yes (Death, Hospitalization)
  Sender: FDA-Public Use
  Company Number: FABR-12193

PATIENT
  Age: 51 Year
  Sex: Male
  Weight: 79.3 kg

DRUGS (1)
  1. FABRAZYME [Suspect]
     Indication: FABRY'S DISEASE
     Dosage: 105 MG Q2WKS; IV
     Route: 042
     Dates: start: 20030723

REACTIONS (1)
  - HAEMORRHAGIC STROKE [None]
